FAERS Safety Report 14131569 (Version 3)
Quarter: 2017Q4

REPORT INFORMATION
  Report Type: Spontaneous
  Country: JP (occurrence: JP)
  Receive Date: 20171026
  Receipt Date: 20171221
  Transmission Date: 20180321
  Serious: Yes (Other)
  Sender: FDA-Public Use
  Company Number: JP-VALIDUS PHARMACEUTICALS LLC-JP-2017VAL001474

PATIENT
  Age: 79 Year
  Sex: Male

DRUGS (5)
  1. LASIX [Suspect]
     Active Substance: FUROSEMIDE
     Dosage: UNK
     Route: 042
     Dates: end: 20171012
  2. LASIX [Suspect]
     Active Substance: FUROSEMIDE
     Indication: PRODUCT USED FOR UNKNOWN INDICATION
     Dosage: 20 MG, QD
     Route: 042
     Dates: start: 20171006, end: 20171016
  3. LASIX [Suspect]
     Active Substance: FUROSEMIDE
     Dosage: 20 MG, QD
     Route: 042
     Dates: start: 20161209, end: 20161212
  4. KN SOL. 3B [Concomitant]
     Active Substance: DEXTROSE\POTASSIUM CHLORIDE\SODIUM CHLORIDE\SODIUM LACTATE
     Indication: PRODUCT USED FOR UNKNOWN INDICATION
     Dosage: UNK
     Dates: start: 20161209
  5. ELECTROLYTE SOLUTIONS              /07473201/ [Concomitant]
     Indication: PRODUCT USED FOR UNKNOWN INDICATION
     Dosage: UNK
     Dates: start: 20161209

REACTIONS (2)
  - Rash vesicular [Recovered/Resolved]
  - Pemphigoid [Recovering/Resolving]

NARRATIVE: CASE EVENT DATE: 20161212
